FAERS Safety Report 18071533 (Version 2)
Quarter: 2020Q3

REPORT INFORMATION
  Report Type: Spontaneous
  Country: US (occurrence: US)
  Receive Date: 20200727
  Receipt Date: 20200814
  Transmission Date: 20201103
  Serious: Yes (Death, Life-Threatening, Hospitalization)
  Sender: FDA-Public Use
  Company Number: US-STRIDES ARCOLAB LIMITED-2020SP008384

PATIENT
  Age: 67 Year
  Sex: Male

DRUGS (3)
  1. METRONIDAZOLE. [Suspect]
     Active Substance: METRONIDAZOLE
     Indication: ENTERITIS
     Dosage: 500 MILLIGRAM, QID
     Route: 065
  2. AMOXICILLIN. [Concomitant]
     Active Substance: AMOXICILLIN
     Indication: PNEUMONIA ASPIRATION
     Dosage: UNK
     Route: 065
  3. METRONIDAZOLE. [Suspect]
     Active Substance: METRONIDAZOLE
     Indication: PNEUMONIA ASPIRATION
     Dosage: UNK
     Route: 065

REACTIONS (9)
  - Gaze palsy [Unknown]
  - Cerebral microhaemorrhage [Unknown]
  - Intentional product misuse [Unknown]
  - Depressed level of consciousness [Not Recovered/Not Resolved]
  - Toxic encephalopathy [Not Recovered/Not Resolved]
  - Respiratory disorder [Unknown]
  - Gait disturbance [Unknown]
  - Wernicke^s encephalopathy [Fatal]
  - Neurological decompensation [Not Recovered/Not Resolved]
